FAERS Safety Report 15375393 (Version 2)
Quarter: 2018Q4

REPORT INFORMATION
  Report Type: Spontaneous
  Country: US (occurrence: US)
  Receive Date: 20180912
  Receipt Date: 20181019
  Transmission Date: 20190204
  Serious: No
  Sender: FDA-Public Use
  Company Number: US-SA-2018SA253972

PATIENT
  Sex: Male

DRUGS (1)
  1. TOUJEO [Suspect]
     Active Substance: INSULIN GLARGINE
     Indication: TYPE 1 DIABETES MELLITUS
     Dosage: 50 IU, QD
     Route: 065

REACTIONS (3)
  - Blood glucose increased [Unknown]
  - Product storage error [Unknown]
  - Device issue [Unknown]
